FAERS Safety Report 8949117 (Version 2)
Quarter: 2012Q4

REPORT INFORMATION
  Report Type: 
  Country: US (occurrence: US)
  Receive Date: 20121121
  Receipt Date: 20121212
  Transmission Date: 20130627
  Serious: Yes (Death)
  Sender: FDA-Public Use
  Company Number: US-ASTELLAS-1118955

PATIENT
  Sex: Male

DRUGS (1)
  1. TARCEVA [Suspect]
     Indication: MALIGNANT RESPIRATORY TRACT NEOPLASM
     Route: 048
     Dates: start: 20060901, end: 20061206

REACTIONS (3)
  - Acute respiratory failure [Fatal]
  - Cardiac failure congestive [Fatal]
  - Lung carcinoma cell type unspecified stage IV [Fatal]
